FAERS Safety Report 11467916 (Version 1)
Quarter: 2015Q3

REPORT INFORMATION
  Report Type: Spontaneous
  Country: BR (occurrence: BR)
  Receive Date: 20150908
  Receipt Date: 20150908
  Transmission Date: 20151125
  Serious: Yes (Other)
  Sender: FDA-Public Use
  Company Number: BR-SA-2015SA132072

PATIENT
  Age: 46 Year
  Sex: Female

DRUGS (2)
  1. INSULIN, REGULAR [Concomitant]
     Active Substance: INSULIN NOS
     Dates: end: 2015
  2. LANTUS [Suspect]
     Active Substance: INSULIN GLARGINE
     Route: 065
     Dates: start: 2013

REACTIONS (3)
  - Blood glucose abnormal [Unknown]
  - Blood glucose increased [Unknown]
  - Postmenopausal haemorrhage [Not Recovered/Not Resolved]

NARRATIVE: CASE EVENT DATE: 2015
